FAERS Safety Report 8362774-7 (Version None)
Quarter: 2012Q2

REPORT INFORMATION
  Report Type: 
  Country: None (occurrence: None)
  Receive Date: 20120516
  Receipt Date: 20120509
  Transmission Date: 20120825
  Serious: Yes (Other)
  Sender: FDA-Public Use
  Company Number: PHHY2012BR038325

PATIENT
  Sex: Female
  Weight: 80 kg

DRUGS (6)
  1. STILNOX                                 /FRA/ [Concomitant]
     Indication: SOMNOLENCE
     Dosage: 1 DF, BID
     Route: 048
  2. INDAPAMIDE [Concomitant]
     Indication: HYPERTENSION
     Dosage: 15 MG, DAILY
  3. EXELON [Suspect]
     Indication: DEMENTIA ALZHEIMER'S TYPE
     Dosage: 1 DF, DAILY
  4. EXELON [Suspect]
     Dosage: UNK UKN, UNK
  5. LEVOTHYROXINE SODIUM [Concomitant]
     Indication: THYROIDECTOMY
     Dosage: ONE TABLET DAILY
  6. QUETIAPINE FUMARATE [Concomitant]
     Dosage: 1 DF, BID
     Route: 048

REACTIONS (4)
  - FALL [None]
  - UPPER LIMB FRACTURE [None]
  - HALLUCINATION [None]
  - NERVOUSNESS [None]
